FAERS Safety Report 5140653-6 (Version None)
Quarter: 2006Q4

REPORT INFORMATION
  Report Type: 
  Country: None (occurrence: None)
  Receive Date: 20061031
  Receipt Date: 20061026
  Transmission Date: 20070319
  Serious: Yes (Hospitalization)
  Sender: FDA-Public Use
  Company Number: JP-BOEHRINGER INGELHEIM PHARMACEUTICALS, INC.-2006-BP-12682YA

PATIENT
  Age: 75 Year
  Sex: Male

DRUGS (9)
  1. HARNAL (TAMSULOSIN) ORODISPERSABLE CR [Suspect]
     Indication: BENIGN PROSTATIC HYPERPLASIA
     Route: 048
  2. HARNAL [Suspect]
     Indication: BENIGN PROSTATIC HYPERPLASIA
     Route: 048
  3. ALLOPURINOL [Concomitant]
  4. CERNILTON [Concomitant]
  5. CYANOCOBALAMIN [Concomitant]
  6. LOXONIN [Concomitant]
  7. MYONAL [Concomitant]
  8. HALCION [Concomitant]
  9. RHYTHMY [Concomitant]

REACTIONS (1)
  - DRUG ERUPTION [None]
